FAERS Safety Report 22042038 (Version 1)
Quarter: 2023Q1

REPORT INFORMATION
  Report Type: Other
  Country: None (occurrence: US)
  Receive Date: 20230227
  Receipt Date: 20230227
  Transmission Date: 20230418
  Serious: Yes (Hospitalization)
  Sender: FDA-Public Use
  Company Number: US-ALSI-2022000071

PATIENT
  Age: 40 Year
  Sex: Female

DRUGS (1)
  1. NITROGEN [Suspect]
     Active Substance: NITROGEN
     Indication: Accidental exposure to product
     Route: 003

REACTIONS (2)
  - Blister [Recovered/Resolved]
  - Pain in extremity [Recovered/Resolved]
